FAERS Safety Report 7329028-9 (Version None)
Quarter: 2011Q1

REPORT INFORMATION
  Report Type: 
  Country: None (occurrence: None)
  Receive Date: 20110303
  Receipt Date: 20110224
  Transmission Date: 20110831
  Serious: Yes (Death)
  Sender: FDA-Public Use
  Company Number: US-GENZYME-201015921GPV

PATIENT

DRUGS (2)
  1. FLUDARA [Suspect]
     Indication: BONE MARROW CONDITIONING REGIMEN
     Dosage: UNK
     Route: 065
  2. CYCLOSPORINE [Concomitant]
     Indication: PROPHYLAXIS AGAINST GRAFT VERSUS HOST DISEASE
     Route: 065

REACTIONS (7)
  - VENOOCCLUSIVE DISEASE [None]
  - LEUKOENCEPHALOPATHY [None]
  - PULMONARY ALVEOLAR HAEMORRHAGE [None]
  - SEPSIS [None]
  - MULTI-ORGAN FAILURE [None]
  - ENCEPHALOPATHY [None]
  - NEOPLASM MALIGNANT [None]
